FAERS Safety Report 22175356 (Version 1)
Quarter: 2023Q2

REPORT INFORMATION
  Report Type: Report from Study
  Country: US (occurrence: US)
  Receive Date: 20230405
  Receipt Date: 20230405
  Transmission Date: 20230721
  Serious: Yes (Other)
  Sender: FDA-Public Use
  Company Number: US-MYLANLABS-2023M1032402

PATIENT
  Sex: Male

DRUGS (1)
  1. CLOZAPINE [Suspect]
     Active Substance: CLOZAPINE
     Indication: Parkinson^s disease
     Dosage: UNK
     Route: 048
     Dates: start: 20210305

REACTIONS (3)
  - Dementia [Unknown]
  - Withdrawal hypertension [Unknown]
  - Withdrawal syndrome [Unknown]
